FAERS Safety Report 16944730 (Version 1)
Quarter: 2019Q4

REPORT INFORMATION
  Report Type: Spontaneous
  Country: US (occurrence: US)
  Receive Date: 20191022
  Receipt Date: 20191022
  Transmission Date: 20200122
  Serious: Yes (Other)
  Sender: FDA-Public Use
  Company Number: US-PFIZER INC-2019456528

PATIENT
  Age: 49 Year
  Sex: Male

DRUGS (5)
  1. VIAGRA [Suspect]
     Active Substance: SILDENAFIL CITRATE
     Indication: ERECTILE DYSFUNCTION
     Dosage: UNK(1-2TIMES A WEEK )
     Route: 048
  2. CIALIS [Suspect]
     Active Substance: TADALAFIL
     Dosage: UNK(1 TAB A DAY AS NEEDED)
     Dates: start: 20100319
  3. CIALIS [Suspect]
     Active Substance: TADALAFIL
     Indication: ERECTILE DYSFUNCTION
     Dosage: UNK(1 TAB A DAY AS NEEDED)
     Dates: start: 20090213
  4. CIALIS [Suspect]
     Active Substance: TADALAFIL
     Dosage: UNK(1 TAB A DAY AS NEEDED)
     Dates: start: 201209
  5. LEVITRA [Suspect]
     Active Substance: VARDENAFIL HYDROCHLORIDE
     Indication: ERECTILE DYSFUNCTION
     Dosage: UNK(EVERY 2 WEEKS)
     Dates: start: 201109

REACTIONS (1)
  - Malignant melanoma stage IV [Unknown]

NARRATIVE: CASE EVENT DATE: 20120517
